FAERS Safety Report 16243429 (Version 2)
Quarter: 2019Q2

REPORT INFORMATION
  Report Type: Spontaneous
  Country: US (occurrence: US)
  Receive Date: 20190426
  Receipt Date: 20190613
  Transmission Date: 20190711
  Serious: Yes (Hospitalization, Other)
  Sender: FDA-Public Use
  Company Number: US-PFIZER INC-2019167349

PATIENT
  Age: 90 Year
  Sex: Female
  Weight: 109.77 kg

DRUGS (6)
  1. WARFARIN SODIUM. [Concomitant]
     Active Substance: WARFARIN SODIUM
     Indication: ANTICOAGULANT THERAPY
     Dosage: 5 MG, WEEKLY (1 TABLET 5 DAYS A WEEK)
  2. LISINOPRIL. [Concomitant]
     Active Substance: LISINOPRIL
     Indication: BLOOD PRESSURE ABNORMAL
     Dosage: 10 MG, 1X/DAY
     Route: 048
  3. SYNTHROID [Concomitant]
     Active Substance: LEVOTHYROXINE SODIUM
     Indication: GOITRE
     Dosage: UNK
  4. TIKOSYN [Suspect]
     Active Substance: DOFETILIDE
     Indication: VENTRICULAR SEPTAL DEFECT
     Dosage: 0.25 MG, 2X/DAY
     Route: 048
  5. METFORMIN [Concomitant]
     Active Substance: METFORMIN HYDROCHLORIDE
     Indication: GLUCOSE TOLERANCE IMPAIRED
     Dosage: 500 MG, 2X/DAY
  6. WARFARIN SODIUM. [Concomitant]
     Active Substance: WARFARIN SODIUM
     Dosage: 1.5 DF, 2X/WEEK

REACTIONS (7)
  - Haematoma infection [Recovered/Resolved]
  - Injury corneal [Recovered/Resolved]
  - Fall [Unknown]
  - Swelling face [Recovered/Resolved]
  - Wound [Recovered/Resolved]
  - Haematoma [Recovered/Resolved]
  - Enlarged uvula [Recovered/Resolved]

NARRATIVE: CASE EVENT DATE: 20190213
